FAERS Safety Report 6554315-1 (Version None)
Quarter: 2010Q1

REPORT INFORMATION
  Report Type: 
  Country: None (occurrence: None)
  Receive Date: 20100127
  Receipt Date: 20091201
  Transmission Date: 20100710
  Serious: Yes (Other)
  Sender: FDA-Public Use
  Company Number: B0629063A

PATIENT
  Age: 21 Year
  Sex: Female

DRUGS (1)
  1. DUAC [Suspect]
     Route: 061
     Dates: start: 20091020, end: 20091029

REACTIONS (4)
  - ERYTHEMA [None]
  - OEDEMA [None]
  - PRURITUS [None]
  - RASH [None]
